FAERS Safety Report 21418027 (Version 1)
Quarter: 2022Q4

REPORT INFORMATION
  Report Type: Spontaneous
  Country: JP (occurrence: JP)
  Receive Date: 20221006
  Receipt Date: 20221006
  Transmission Date: 20230113
  Serious: Yes (Hospitalization, Other)
  Sender: FDA-Public Use
  Company Number: JP-GSKNCCC-Case-01581724_AE-62779

PATIENT

DRUGS (2)
  1. LAMICTAL [Suspect]
     Active Substance: LAMOTRIGINE
     Indication: Bipolar disorder
     Dosage: 100 MG/DAY (50 MG, 2 TABLETS/DAY)
     Route: 048
  2. LAMICTAL [Suspect]
     Active Substance: LAMOTRIGINE
     Dosage: 200 MG, BID (100 MG, 2 TABLETS IN MORNING AND 2 TABLETS IN EVENING)
     Route: 048

REACTIONS (11)
  - Altered state of consciousness [Unknown]
  - Cerebral haemorrhage [Recovered/Resolved]
  - Suicidal ideation [Unknown]
  - Hospitalisation [Unknown]
  - Somnolence [Unknown]
  - Road traffic accident [Unknown]
  - Depression [Unknown]
  - Memory impairment [Unknown]
  - Language disorder [Recovered/Resolved]
  - Mania [Unknown]
  - Amnesia [Unknown]
